FAERS Safety Report 23614574 (Version 2)
Quarter: 2024Q1

REPORT INFORMATION
  Report Type: Other
  Country: US (occurrence: None)
  Receive Date: 20240311
  Receipt Date: 20240311
  Transmission Date: 20240410
  Serious: Yes (Other)
  Sender: FDA-Public Use
  Company Number: US-ROCHE-3519181

PATIENT
  Age: 55 Year
  Sex: Female

DRUGS (5)
  1. OCREVUS [Suspect]
     Active Substance: OCRELIZUMAB
     Indication: Relapsing-remitting multiple sclerosis
     Dosage: DATE OCREVUS LAST ADMINISTERED: 16/JUN/2023.LAST OCREVUS INFUSION WAS-NOV-2023
     Route: 042
     Dates: start: 20180404
  2. OCREVUS [Suspect]
     Active Substance: OCRELIZUMAB
     Dosage: ANOTHER 300 MG
     Route: 042
     Dates: start: 20180418
  3. OCREVUS [Suspect]
     Active Substance: OCRELIZUMAB
     Route: 042
  4. GABAPENTIN [Concomitant]
     Active Substance: GABAPENTIN
  5. ARMODAFINIL [Concomitant]
     Active Substance: ARMODAFINIL

REACTIONS (2)
  - Urinary tract infection [Not Recovered/Not Resolved]
  - Abscess [Recovered/Resolved]

NARRATIVE: CASE EVENT DATE: 20230101
